FAERS Safety Report 4334590-4 (Version None)
Quarter: 2004Q2

REPORT INFORMATION
  Report Type: 
  Country: None (occurrence: None)
  Receive Date: 20040407
  Receipt Date: 20040405
  Transmission Date: 20050107
  Serious: Yes (Other)
  Sender: FDA-Public Use
  Company Number: US-BRISTOL-MYERS SQUIBB COMPANY-12551032

PATIENT
  Age: 82 Year
  Sex: Female
  Weight: 54 kg

DRUGS (4)
  1. SINEMET CR [Suspect]
     Indication: PARKINSON'S DISEASE
     Dosage: DOSAGE: 25MG/250MG
     Route: 048
  2. DETROL LA [Concomitant]
  3. THYROID TAB [Concomitant]
     Indication: THYROID DISORDER
     Route: 048
  4. ZOCOR [Concomitant]

REACTIONS (2)
  - ASTHENIA [None]
  - PARALYSIS [None]
